FAERS Safety Report 17108636 (Version 1)
Quarter: 2019Q4

REPORT INFORMATION
  Report Type: Spontaneous
  Country: CN (occurrence: CN)
  Receive Date: 20191204
  Receipt Date: 20191204
  Transmission Date: 20200122
  Serious: Yes (Other)
  Sender: FDA-Public Use
  Company Number: CN-ROCHE-2486952

PATIENT
  Age: 40 Year
  Sex: Female

DRUGS (1)
  1. RANIBIZUMAB. [Suspect]
     Active Substance: RANIBIZUMAB
     Indication: PRODUCT USED FOR UNKNOWN INDICATION
     Dosage: IN RIGHT EYE
     Route: 031
     Dates: start: 20190417

REACTIONS (6)
  - Retinal vein occlusion [Unknown]
  - Angle closure glaucoma [Unknown]
  - Vision blurred [Not Recovered/Not Resolved]
  - Retinal artery occlusion [Unknown]
  - Iris neovascularisation [Unknown]
  - Blindness [Unknown]

NARRATIVE: CASE EVENT DATE: 20190420
